FAERS Safety Report 7915339-2 (Version None)
Quarter: 2011Q4

REPORT INFORMATION
  Report Type: 
  Country: None (occurrence: None)
  Receive Date: 20111115
  Receipt Date: 20111102
  Transmission Date: 20120403
  Serious: Yes (Hospitalization, Disabling, Other)
  Sender: FDA-Public Use
  Company Number: PHHO2007DE04415

PATIENT
  Sex: Female
  Weight: 75 kg

DRUGS (8)
  1. GILENYA [Suspect]
     Indication: MULTIPLE SCLEROSIS
     Dosage: 1.25 MG, QD
     Route: 048
     Dates: start: 20070222, end: 20070307
  2. FRAXIPARIN [Concomitant]
  3. CARBAMAZEPINE [Concomitant]
  4. METHYLPREDNISOLONE [Concomitant]
  5. PANTOPRAZOLE SODIUM [Concomitant]
  6. ASPIRIN [Concomitant]
  7. HEPARIN [Concomitant]
  8. TEGRETOL [Concomitant]

REACTIONS (20)
  - NECROSIS [None]
  - HYPOAESTHESIA [None]
  - RAYNAUD'S PHENOMENON [None]
  - OEDEMA PERIPHERAL [None]
  - ARTERIAL OCCLUSIVE DISEASE [None]
  - PAIN IN EXTREMITY [None]
  - ARTERIAL SPASM [None]
  - LEFT VENTRICULAR DYSFUNCTION [None]
  - BLOOD PRESSURE INCREASED [None]
  - STRESS [None]
  - ARTERIAL THROMBOSIS LIMB [None]
  - PETECHIAE [None]
  - CATHETER PLACEMENT [None]
  - PULSE ABSENT [None]
  - VASOSPASM [None]
  - HYPOPERFUSION [None]
  - PERIPHERAL COLDNESS [None]
  - SKIN DISCOLOURATION [None]
  - SPLINTER HAEMORRHAGES [None]
  - HYPOKINESIA [None]
